FAERS Safety Report 9645245 (Version 1)
Quarter: 2013Q4

REPORT INFORMATION
  Report Type: Spontaneous
  Country: US (occurrence: None)
  Receive Date: 20131023
  Receipt Date: 20131023
  Transmission Date: 20140711
  Serious: Yes (Other)
  Sender: FDA-Public Use
  Company Number: None

PATIENT
  Age: 52 Year
  Sex: Female
  Weight: 50.8 kg

DRUGS (13)
  1. AZASITE [Suspect]
     Indication: DRY EYE
     Dates: start: 20130910, end: 20130928
  2. AZASITE [Suspect]
     Indication: EYE INFLAMMATION
     Dates: start: 20130910, end: 20130928
  3. LEVOTHYROXINE [Concomitant]
  4. ESTRACE VAGINAL CREAM [Concomitant]
  5. PROTOPIC OINTMENT [Concomitant]
  6. PERCOCET [Concomitant]
  7. FLAXSEED OIL [Concomitant]
  8. FISH OIL [Concomitant]
  9. CALCIUM [Concomitant]
  10. MAGNESIUM [Concomitant]
  11. VITAMIN D [Concomitant]
  12. MULTI VITAMIN [Concomitant]
  13. ALPHA LIPOIC ACID [Concomitant]

REACTIONS (1)
  - Tinnitus [None]
